FAERS Safety Report 20723531 (Version 1)
Quarter: 2022Q2

REPORT INFORMATION
  Report Type: Spontaneous
  Country: DE (occurrence: DE)
  Receive Date: 20220419
  Receipt Date: 20220419
  Transmission Date: 20220721
  Serious: Yes (Hospitalization, Other)
  Sender: FDA-Public Use
  Company Number: DE-EMA-2022330-AUTODUP-1648669178681

PATIENT
  Age: 60 Year
  Sex: Female

DRUGS (9)
  1. PEMETREXED [Suspect]
     Active Substance: PEMETREXED
     Indication: Non-small cell lung cancer
     Dosage: UNK UNK, UNKNOWN ()
     Route: 065
     Dates: start: 2019
  2. MEROPENEM [Suspect]
     Active Substance: MEROPENEM
     Indication: Febrile infection
     Dosage: UNK UNK, UNKNOWN ()
     Route: 065
  3. GEMCITABINE [Suspect]
     Active Substance: GEMCITABINE
     Indication: Non-small cell lung cancer
     Dosage: UNK
     Route: 065
     Dates: start: 2021
  4. CARBOPLATIN [Suspect]
     Active Substance: CARBOPLATIN
     Indication: Non-small cell lung cancer
     Dosage: UNK UNK, UNKNOWN ()
     Route: 065
  5. PACLITAXEL [Suspect]
     Active Substance: PACLITAXEL
     Indication: Non-small cell lung cancer
     Dosage: UNK
     Route: 065
     Dates: start: 202009
  6. PIPERACILLIN SODIUM\TAZOBACTAM SODIUM [Suspect]
     Active Substance: PIPERACILLIN SODIUM\TAZOBACTAM SODIUM
     Indication: Febrile infection
     Dosage: UNK UNK, UNKNOWN ()
     Route: 065
  7. LEVOFLOXACIN [Suspect]
     Active Substance: LEVOFLOXACIN
     Indication: Febrile infection
     Dosage: UNK UNK, UNKNOWN ()
     Route: 065
  8. PEMBROLIZUMAB [Suspect]
     Active Substance: PEMBROLIZUMAB
     Indication: Non-small cell lung cancer
     Dosage: UNK UNK, UNKNOWN ()
     Route: 065
  9. SELPERCATINIB [Suspect]
     Active Substance: SELPERCATINIB
     Indication: Non-small cell lung cancer
     Dosage: 160 MG, BID
     Route: 065
     Dates: start: 202110

REACTIONS (16)
  - Malignant neoplasm progression [Unknown]
  - Hypersensitivity [Unknown]
  - Pulmonary embolism [Unknown]
  - Electrocardiogram QT prolonged [Recovering/Resolving]
  - Hepatic failure [Recovering/Resolving]
  - Urinary tract infection [Unknown]
  - Cough [Unknown]
  - Proteinuria [Unknown]
  - Urinary tract infection enterococcal [Unknown]
  - Inflammatory marker increased [Unknown]
  - Blood creatinine increased [Unknown]
  - General physical health deterioration [Unknown]
  - Tumour associated fever [Unknown]
  - Haematuria [Unknown]
  - Febrile infection [Unknown]
  - Infection [Unknown]

NARRATIVE: CASE EVENT DATE: 20190901
